FAERS Safety Report 5383196-7 (Version None)
Quarter: 2007Q3

REPORT INFORMATION
  Report Type: 
  Country: None (occurrence: None)
  Receive Date: 20070710
  Receipt Date: 20070709
  Transmission Date: 20080115
  Serious: Yes (Death, Other)
  Sender: FDA-Public Use
  Company Number: US-ASTRAZENECA-2007UW15973

PATIENT
  Age: 18 Year
  Sex: Female
  Weight: 156.8 kg

DRUGS (5)
  1. SEROQUEL [Suspect]
     Indication: SLEEP DISORDER
     Route: 048
     Dates: start: 20000101, end: 20030701
  2. SEROQUEL [Suspect]
     Indication: SEDATION
     Route: 048
     Dates: start: 20000101, end: 20030701
  3. NEURONTIN [Concomitant]
  4. ATIVAN [Concomitant]
  5. XANAX [Concomitant]

REACTIONS (4)
  - COMPLETED SUICIDE [None]
  - DEPRESSION [None]
  - MANIA [None]
  - WEIGHT INCREASED [None]
